FAERS Safety Report 9715630 (Version 2)
Quarter: 2013Q4

REPORT INFORMATION
  Report Type: Spontaneous
  Country: US (occurrence: US)
  Receive Date: 20131127
  Receipt Date: 20131127
  Transmission Date: 20140711
  Serious: Yes (Other)
  Sender: FDA-Public Use
  Company Number: US-BRISTOL-MYERS SQUIBB COMPANY-19467372

PATIENT
  Age: 63 Year
  Sex: Female

DRUGS (3)
  1. BYDUREON [Suspect]
     Route: 058
     Dates: start: 2013
  2. COUMADIN [Suspect]
  3. ELIQUIS [Suspect]

REACTIONS (2)
  - Neoplasm malignant [Unknown]
  - Vaginal haemorrhage [Unknown]
